FAERS Safety Report 25246353 (Version 1)
Quarter: 2025Q2

REPORT INFORMATION
  Report Type: Spontaneous
  Country: AU (occurrence: AU)
  Receive Date: 20250428
  Receipt Date: 20250428
  Transmission Date: 20250716
  Serious: Yes (Other)
  Sender: TAKEDA
  Company Number: AU-TAKEDA-2025TUS039962

PATIENT
  Age: 45 Year
  Sex: Male

DRUGS (2)
  1. VYVANSE [Suspect]
     Active Substance: LISDEXAMFETAMINE DIMESYLATE
     Indication: Attention deficit hyperactivity disorder
  2. VYVANSE [Suspect]
     Active Substance: LISDEXAMFETAMINE DIMESYLATE

REACTIONS (14)
  - Apathy [Unknown]
  - Asthenia [Recovering/Resolving]
  - Binge eating [Recovering/Resolving]
  - Condition aggravated [Unknown]
  - Depression [Recovering/Resolving]
  - Executive dysfunction [Recovering/Resolving]
  - Heart rate increased [Unknown]
  - Memory impairment [Recovering/Resolving]
  - Regressive behaviour [Recovering/Resolving]
  - Stereotypy [Recovering/Resolving]
  - Therapeutic product effect variable [Unknown]
  - Therapeutic response decreased [Unknown]
  - Trichotillomania [Unknown]
  - Weight increased [Recovering/Resolving]

NARRATIVE: CASE EVENT DATE: 20250105
